FAERS Safety Report 4906128-1 (Version None)
Quarter: 2006Q1

REPORT INFORMATION
  Report Type: 
  Country: None (occurrence: None)
  Receive Date: 20060207
  Receipt Date: 20060207
  Transmission Date: 20060701
  Serious: Yes (Death)
  Sender: FDA-Public Use
  Company Number: None

PATIENT
  Sex: Male
  Weight: 70.82 kg

DRUGS (1)
  1. INTRON A [Suspect]
     Indication: RENAL CELL CARCINOMA STAGE UNSPECIFIED
     Dosage: 51 MG
     Dates: start: 20040422

REACTIONS (2)
  - PERFORMANCE STATUS DECREASED [None]
  - REFUSAL OF TREATMENT BY PATIENT [None]
